FAERS Safety Report 19256850 (Version 1)
Quarter: 2021Q2

REPORT INFORMATION
  Report Type: Spontaneous
  Country: US (occurrence: US)
  Receive Date: 20210513
  Receipt Date: 20210513
  Transmission Date: 20210717
  Serious: Yes (Other)
  Sender: FDA-Public Use
  Company Number: US-PFIZER INC-2021486072

PATIENT
  Age: 71 Year
  Sex: Male

DRUGS (1)
  1. RAPAMUNE [Suspect]
     Active Substance: SIROLIMUS
     Dosage: 1 MG, DAILY (TAKE 2 TABLETS (2MG TOTAL) BY MOUTH DAILY
     Route: 048

REACTIONS (2)
  - Lip and/or oral cavity cancer [Unknown]
  - Throat cancer [Unknown]
